FAERS Safety Report 7002632-3 (Version None)
Quarter: 2010Q3

REPORT INFORMATION
  Report Type: 
  Country: None (occurrence: None)
  Receive Date: 20100917
  Receipt Date: 20100917
  Transmission Date: 20110219
  Serious: Yes (Hospitalization)
  Sender: FDA-Public Use
  Company Number: None

PATIENT
  Sex: Female
  Weight: 58.1 kg

DRUGS (2)
  1. AZACITIDINE [Suspect]
     Indication: ACUTE MYELOID LEUKAEMIA
     Dosage: 75MG/M2 QD IV
     Route: 042
  2. REVLIMID [Suspect]
     Dosage: 90 MG QD PO
     Route: 048

REACTIONS (11)
  - CHILLS [None]
  - DYSURIA [None]
  - ESCHERICHIA INFECTION [None]
  - FEBRILE NEUTROPENIA [None]
  - HEADACHE [None]
  - KLEBSIELLA INFECTION [None]
  - MICTURITION URGENCY [None]
  - POLLAKIURIA [None]
  - RESPIRATORY FAILURE [None]
  - RHINORRHOEA [None]
  - URINARY TRACT INFECTION [None]
